FAERS Safety Report 6443017-8 (Version None)
Quarter: 2009Q4

REPORT INFORMATION
  Report Type: 
  Country: None (occurrence: None)
  Receive Date: 20091117
  Receipt Date: 20091113
  Transmission Date: 20100525
  Serious: Yes (Death)
  Sender: FDA-Public Use
  Company Number: PHHY2009AU08978

PATIENT
  Sex: Male

DRUGS (2)
  1. NEORAL [Suspect]
     Indication: DERMATITIS
     Dosage: 100 MG, BID
  2. STATIN (UNSPECIFIED) [Concomitant]

REACTIONS (2)
  - RENAL FAILURE ACUTE [None]
  - RHABDOMYOLYSIS [None]
